FAERS Safety Report 8276926 (Version 7)
Quarter: 2014Q1

REPORT INFORMATION
  Report Type: Report from Study
  Country: US (occurrence: US)
  Receive Date: 20111206
  Receipt Date: 20140121
  Transmission Date: 20141002
  Serious: Yes (Hospitalization, Other)
  Sender: FDA-Public Use
  Company Number: PHEH2011US010519

PATIENT
  Age: 53 Year
  Sex: Female

DRUGS (18)
  1. GILENYA [Suspect]
     Indication: MULTIPLE SCLEROSIS
     Dosage: 0.5 MG, QD
     Route: 048
     Dates: start: 20111001
  2. NUVIGIL [Suspect]
     Dosage: 250 MG, UNK
     Dates: start: 20110623
  3. LITHIUM [Concomitant]
     Indication: BIPOLAR DISORDER
  4. XANAX [Concomitant]
     Indication: BIPOLAR DISORDER
     Dosage: 1 MG, QD
  5. LIPITOR [Concomitant]
     Indication: BLOOD CHOLESTEROL
  6. ASPIRIN ENTERIC COATED K.P. [Concomitant]
     Dosage: 325 MG, UNK
  7. TRIAZOLAM [Concomitant]
     Indication: SLEEP DISORDER
     Dosage: 0.25 MG, UNK
  8. LOMOTIL [Concomitant]
  9. LOTRONEX [Concomitant]
  10. CITALOPRAM [Concomitant]
     Dosage: 20 MG, QD
  11. AMPHETAMINE SALTS [Concomitant]
     Dosage: 10 MG, UNK
  12. DICYCLOMINE [Concomitant]
     Dosage: 10 MG, UNK
  13. ADDERALL [Concomitant]
     Indication: ASTHENIA
     Dosage: 10 MG, BID
  14. METOCLOPRAMIDE [Concomitant]
     Indication: BIPOLAR DISORDER
     Dosage: 10 MG, UNK
  15. ATORVASTATIN [Concomitant]
     Indication: SLEEP DISORDER
     Dosage: 20 MG, UNK
  16. ALPRAZOLAM [Concomitant]
  17. ZOLPIDEM TARTRATE [Concomitant]
  18. CYMBALTA [Concomitant]

REACTIONS (20)
  - Multiple sclerosis relapse [Not Recovered/Not Resolved]
  - Aphagia [Unknown]
  - Insomnia [Unknown]
  - Memory impairment [Unknown]
  - Dysarthria [Unknown]
  - Visual acuity reduced [Unknown]
  - Asthenia [Unknown]
  - Fatigue [Unknown]
  - Balance disorder [Unknown]
  - Depression [Unknown]
  - Optic nerve disorder [Unknown]
  - Tremor [Not Recovered/Not Resolved]
  - Impaired driving ability [Not Recovered/Not Resolved]
  - Malaise [Not Recovered/Not Resolved]
  - Blindness unilateral [Not Recovered/Not Resolved]
  - Hand-eye coordination impaired [Not Recovered/Not Resolved]
  - Neuropathy peripheral [Unknown]
  - Abdominal discomfort [Unknown]
  - Bowel movement irregularity [Unknown]
  - Weight decreased [Recovered/Resolved]
